FAERS Safety Report 25004425 (Version 1)
Quarter: 2025Q1

REPORT INFORMATION
  Report Type: Spontaneous
  Country: US (occurrence: None)
  Receive Date: 20250222
  Receipt Date: 20250222
  Transmission Date: 20250409
  Serious: Yes (Disabling)
  Sender: FDA-CTU
  Company Number: None

PATIENT
  Age: 17 Year
  Sex: Male
  Weight: 73.35 kg

DRUGS (1)
  1. AFRIN [Suspect]
     Active Substance: OXYMETAZOLINE HYDROCHLORIDE

REACTIONS (5)
  - Drug dependence [None]
  - Rebound nasal congestion [None]
  - Suffocation feeling [None]
  - Product label issue [None]
  - Educational problem [None]
